FAERS Safety Report 5892655-X (Version None)
Quarter: 2008Q3

REPORT INFORMATION
  Report Type: 
  Country: None (occurrence: None)
  Receive Date: 20080923
  Receipt Date: 20080912
  Transmission Date: 20090109
  Serious: Yes (Other)
  Sender: FDA-Public Use
  Company Number: PHHY2008BE21544

PATIENT
  Sex: Male

DRUGS (3)
  1. RASILEZ [Suspect]
     Indication: HYPERTENSION
     Dosage: 150 MG
     Route: 048
     Dates: start: 20080804
  2. RASILEZ [Suspect]
     Dosage: 300 MG
     Route: 048
  3. LIPITOR [Concomitant]

REACTIONS (2)
  - MICROALBUMINURIA [None]
  - PROTEINURIA [None]
